FAERS Safety Report 12578530 (Version 1)
Quarter: 2016Q3

REPORT INFORMATION
  Report Type: Spontaneous
  Country: GR (occurrence: GR)
  Receive Date: 20160721
  Receipt Date: 20160721
  Transmission Date: 20161109
  Serious: Yes (Life-Threatening, Hospitalization)
  Sender: FDA-Public Use
  Company Number: GR-ACCORD-042462

PATIENT
  Age: 72 Year
  Sex: Male

DRUGS (1)
  1. AMLODIPINE [Suspect]
     Active Substance: AMLODIPINE BESYLATE
     Indication: PRODUCT USED FOR UNKNOWN INDICATION

REACTIONS (8)
  - Hyperglycaemia [Unknown]
  - Anuria [Unknown]
  - Shock [Unknown]
  - Overdose [Unknown]
  - Hypotension [Unknown]
  - Anaemia [Unknown]
  - Blood creatinine increased [Unknown]
  - Dyspnoea [Unknown]
